FAERS Safety Report 19551144 (Version 1)
Quarter: 2021Q3

REPORT INFORMATION
  Report Type: Spontaneous
  Country: US (occurrence: US)
  Receive Date: 20210714
  Receipt Date: 20210714
  Transmission Date: 20211014
  Serious: Yes (Other)
  Sender: FDA-Public Use
  Company Number: US-MYLANLABS-2021M1041638

PATIENT

DRUGS (1)
  1. ROCURONIUM BROMIDE INJECTION [Suspect]
     Active Substance: ROCURONIUM BROMIDE
     Indication: MUSCLE RELAXANT THERAPY
     Dosage: 10 MILLIGRAM

REACTIONS (1)
  - Therapeutic product effect decreased [Unknown]
